FAERS Safety Report 13614997 (Version 1)
Quarter: 2017Q2

REPORT INFORMATION
  Report Type: Spontaneous
  Country: US (occurrence: US)
  Receive Date: 20170605
  Receipt Date: 20170605
  Transmission Date: 20170830
  Serious: Yes (Hospitalization)
  Sender: FDA-Public Use
  Company Number: None

PATIENT
  Age: 53 Year
  Sex: Female
  Weight: 55.7 kg

DRUGS (1)
  1. PACLITAXEL ALBUMIN BOUND 100MG/M2 [Suspect]
     Active Substance: PACLITAXEL
     Indication: PANCREATIC CARCINOMA
     Route: 042
     Dates: start: 20170530

REACTIONS (1)
  - Colitis [None]

NARRATIVE: CASE EVENT DATE: 20170301
